FAERS Safety Report 16395121 (Version 1)
Quarter: 2019Q2

REPORT INFORMATION
  Report Type: Spontaneous
  Country: FR (occurrence: FR)
  Receive Date: 20190605
  Receipt Date: 20190605
  Transmission Date: 20190711
  Serious: Yes (Death)
  Sender: FDA-Public Use
  Company Number: FR-MYLANLABS-2019M1053553

PATIENT
  Age: 56 Year
  Sex: Male
  Weight: 52 kg

DRUGS (5)
  1. DOLIPRANE [Suspect]
     Active Substance: ACETAMINOPHEN
     Indication: PAIN
     Dosage: UNK
     Route: 048
     Dates: start: 20181102, end: 20181112
  2. PANTOPRAZOLE [Suspect]
     Active Substance: PANTOPRAZOLE
     Indication: PROPHYLAXIS AGAINST GASTROINTESTINAL ULCER
     Dosage: UNK
     Route: 048
     Dates: start: 20181102, end: 20181112
  3. DONORMYL                           /00334102/ [Suspect]
     Active Substance: DOXYLAMINE SUCCINATE
     Indication: INSOMNIA
     Dosage: 15 MILLIGRAM, QD
     Route: 048
     Dates: start: 20181102, end: 20181112
  4. XALKORI [Suspect]
     Active Substance: CRIZOTINIB
     Indication: LUNG CANCER METASTATIC
     Dosage: 500 MILLIGRAM, QD
     Route: 048
     Dates: start: 20181015, end: 20181114
  5. VOLTARENE (DICLOFENAC SODIUM) [Suspect]
     Active Substance: DICLOFENAC SODIUM
     Indication: PAIN
     Dosage: 100 MILLIGRAM, QD
     Route: 048
     Dates: start: 20181102, end: 20181112

REACTIONS (2)
  - Bilirubin conjugated increased [Fatal]
  - Hepatocellular injury [Fatal]

NARRATIVE: CASE EVENT DATE: 20181114
